FAERS Safety Report 5030664-3 (Version None)
Quarter: 2006Q2

REPORT INFORMATION
  Report Type: 
  Country: None (occurrence: None)
  Receive Date: 20060615
  Receipt Date: 20060525
  Transmission Date: 20061013
  Serious: Yes (Hospitalization)
  Sender: FDA-Public Use
  Company Number: 2006071772

PATIENT
  Age: 76 Year
  Sex: Male

DRUGS (1)
  1. ESTRACYT (ESTRAMUSTINE PHOSPHATE SODIUM) [Suspect]
     Indication: PROSTATE CANCER
     Dosage: 560 MG, ORAL
     Route: 048
     Dates: start: 20060404, end: 20060412

REACTIONS (1)
  - ERYTHEMA MULTIFORME [None]
